FAERS Safety Report 14836776 (Version 3)
Quarter: 2018Q2

REPORT INFORMATION
  Report Type: Spontaneous
  Country: FR (occurrence: FR)
  Receive Date: 20180502
  Receipt Date: 20180607
  Transmission Date: 20180711
  Serious: Yes (Life-Threatening, Hospitalization, Other)
  Sender: FDA-Public Use
  Company Number: PHHY2018FR075211

PATIENT
  Age: 51 Year
  Sex: Male
  Weight: 79 kg

DRUGS (6)
  1. NICOTINIC ACID [Concomitant]
     Active Substance: NIACIN
     Indication: PRODUCT USED FOR UNKNOWN INDICATION
     Route: 065
  2. LEXOMIL [Concomitant]
     Active Substance: BROMAZEPAM
     Indication: INSOMNIA
     Dosage: 0.5DF IN THE MORNING AND 1DF AT NIGHT
     Route: 048
  3. TAFINLAR [Suspect]
     Active Substance: DABRAFENIB MESYLATE
     Indication: MALIGNANT MELANOMA
     Dosage: 75 MG, UNK
     Route: 065
     Dates: start: 201702, end: 20180404
  4. FUROSEMIDE. [Concomitant]
     Active Substance: FUROSEMIDE
     Indication: PRODUCT USED FOR UNKNOWN INDICATION
     Route: 065
  5. MEKINIST [Suspect]
     Active Substance: TRAMETINIB DIMETHYL SULFOXIDE
     Indication: MALIGNANT MELANOMA
     Dosage: 2 MG, UNK
     Route: 065
     Dates: start: 201702, end: 20180404
  6. ACETAMINOPHEN. [Concomitant]
     Active Substance: ACETAMINOPHEN
     Indication: PRODUCT USED FOR UNKNOWN INDICATION
     Route: 065

REACTIONS (30)
  - Renal failure [Unknown]
  - Dehydration [Unknown]
  - Ischaemia [Recovered/Resolved]
  - Hepatitis A [Unknown]
  - Confusional state [Unknown]
  - Muscle atrophy [Unknown]
  - Proteinuria [Unknown]
  - Asthenia [Recovering/Resolving]
  - Hepatic failure [Unknown]
  - Chromaturia [Unknown]
  - Oedema [Unknown]
  - Pyrexia [Unknown]
  - Rash [Unknown]
  - Liver disorder [Unknown]
  - Faeces discoloured [Unknown]
  - Metabolic acidosis [Unknown]
  - Blood pressure decreased [Recovered/Resolved]
  - Renal function test abnormal [Unknown]
  - Toxicity to various agents [Unknown]
  - Hypokalaemia [Unknown]
  - Spinal pain [Unknown]
  - Decreased appetite [Unknown]
  - Kidney infection [Recovered/Resolved]
  - Asterixis [Unknown]
  - Abdominal pain [Unknown]
  - Fatigue [Unknown]
  - Arthralgia [Unknown]
  - Infection [Unknown]
  - Lethargy [Recovered/Resolved]
  - Vomiting [Unknown]

NARRATIVE: CASE EVENT DATE: 201804
